FAERS Safety Report 10254762 (Version 1)
Quarter: 2014Q2

REPORT INFORMATION
  Report Type: Spontaneous
  Country: US (occurrence: None)
  Receive Date: 20140620
  Receipt Date: 20140620
  Transmission Date: 20141212
  Serious: Yes (Disabling)
  Sender: FDA-Public Use
  Company Number: None

PATIENT
  Age: 51 Year
  Sex: Female
  Weight: 49.9 kg

DRUGS (1)
  1. CIPRO [Suspect]
     Indication: STAPHYLOCOCCAL INFECTION
     Dosage: 2 PILLS A DAY TWICE DAILY
     Dates: start: 20130701, end: 20140607

REACTIONS (4)
  - Tendon rupture [None]
  - Nerve injury [None]
  - Neuropathy peripheral [None]
  - Pain [None]
